FAERS Safety Report 13414397 (Version 4)
Quarter: 2018Q1

REPORT INFORMATION
  Report Type: Spontaneous
  Country: IT (occurrence: IT)
  Receive Date: 20170407
  Receipt Date: 20180307
  Transmission Date: 20180508
  Serious: Yes (Hospitalization)
  Sender: FDA-Public Use
  Company Number: IT-ROCHE-1916305

PATIENT
  Age: 63 Year
  Sex: Female

DRUGS (4)
  1. XELODA [Suspect]
     Active Substance: CAPECITABINE
     Indication: RECTAL ADENOCARCINOMA
     Dosage: 120 X 500 MGIN BLISTER PACK FOR ORAL USE?MOST RECENT DOSE PRIOR TO EVENT WAS ON 25/JAN/2017
     Route: 048
     Dates: start: 20170111
  2. OXALIPLATIN. [Suspect]
     Active Substance: OXALIPLATIN
     Indication: ADENOCARCINOMA OF COLON
  3. OXALIPLATIN. [Suspect]
     Active Substance: OXALIPLATIN
     Indication: RECTAL ADENOCARCINOMA
     Dosage: 176 MG
     Route: 041
     Dates: start: 20170111
  4. XELODA [Suspect]
     Active Substance: CAPECITABINE
     Indication: ADENOCARCINOMA OF COLON

REACTIONS (8)
  - Asthenia [Recovered/Resolved]
  - Diarrhoea [Recovered/Resolved]
  - Vomiting [Recovered/Resolved]
  - Persistent depressive disorder [Recovered/Resolved]
  - Diarrhoea [Recovered/Resolved]
  - Renal failure [Recovered/Resolved]
  - Acute kidney injury [Recovered/Resolved]
  - Dehydration [Recovered/Resolved]

NARRATIVE: CASE EVENT DATE: 20170130
